FAERS Safety Report 5575614-6 (Version None)
Quarter: 2007Q4

REPORT INFORMATION
  Report Type: 
  Country: None (occurrence: None)
  Receive Date: 20071221
  Receipt Date: 20071212
  Transmission Date: 20080405
  Serious: Yes (Hospitalization, Other)
  Sender: FDA-Public Use
  Company Number: 233508K07USA

PATIENT
  Age: 57 Year
  Sex: Female

DRUGS (23)
  1. REBIF [Suspect]
     Indication: MULTIPLE SCLEROSIS
     Dosage: 44 MCG, 3 IN 1 WEEKS, SUBCUTANEOUS
     Route: 058
     Dates: start: 20051012, end: 20070416
  2. ASPIRIN [Concomitant]
  3. TENORMIN [Concomitant]
  4. CALCIUM             (CARBONATE CALCIUM CARBONATE) [Concomitant]
  5. TEGRETOL [Concomitant]
  6. KLONOPIN [Concomitant]
  7. ZETIA [Concomitant]
  8. FERROUS SULFATE TAB [Concomitant]
  9. PROZAC [Concomitant]
  10. LASIX         (FUROSEMIDE /00032601/) [Concomitant]
  11. NEURONTIN [Concomitant]
  12. SYNTHROID [Concomitant]
  13. PROVIGIL [Concomitant]
  14. MULTIVITAMIN          (MULTIVITAMIN) [Concomitant]
  15. PROTONIX [Concomitant]
  16. REQUIP                     (ROPINROLE HYDROCHLORIDE) [Concomitant]
  17. ZOCOR [Concomitant]
  18. ACETAMINOPHEN [Concomitant]
  19. AMOXICILLIN [Concomitant]
  20. BISACODYL               (BISACODYL) [Concomitant]
  21. METOLAZONE [Concomitant]
  22. DOCUSATE SODIUM WITH SENNA                 (SENOKOT-S) [Concomitant]
  23. PRINIVIL [Concomitant]

REACTIONS (4)
  - ANAEMIA [None]
  - NEPHROTIC SYNDROME [None]
  - RENAL INFARCT [None]
  - WEIGHT DECREASED [None]
